FAERS Safety Report 7736226-9 (Version None)
Quarter: 2011Q3

REPORT INFORMATION
  Report Type: 
  Country: None (occurrence: None)
  Receive Date: 20110908
  Receipt Date: 20110906
  Transmission Date: 20111222
  Serious: Yes (Death)
  Sender: FDA-Public Use
  Company Number: US-ASTELLAS-2011US004857

PATIENT
  Sex: Male
  Weight: 77 kg

DRUGS (1)
  1. PROGRAF [Suspect]
     Indication: LUNG TRANSPLANT
     Dosage: 5 MG, BID
     Route: 048
     Dates: start: 20010226

REACTIONS (2)
  - DEATH [None]
  - OFF LABEL USE [None]
